FAERS Safety Report 5241319-4 (Version None)
Quarter: 2007Q1

REPORT INFORMATION
  Report Type: 
  Country: None (occurrence: None)
  Receive Date: 20070215
  Receipt Date: 20070215
  Transmission Date: 20070707
  Serious: Yes (Hospitalization)
  Sender: FDA-Public Use
  Company Number: None

PATIENT
  Sex: Female
  Weight: 54.3 kg

DRUGS (5)
  1. GLIADEL [Suspect]
     Indication: GLIOBLASTOMA MULTIFORME
     Dosage: 7.7 MG PER WAFER ONCE IV
     Route: 042
     Dates: start: 20070123
  2. O6-BENZYLGUANINE (O6BG) [Suspect]
     Indication: GLIOBLASTOMA MULTIFORME
     Dosage: 30 MG/M2 INFUSION X 5 DAYS IV
     Route: 042
     Dates: start: 20070123, end: 20070128
  3. ZANTAC [Concomitant]
  4. OXYCODONE HCL [Concomitant]
  5. DECADRON [Concomitant]

REACTIONS (6)
  - BACK PAIN [None]
  - HEADACHE [None]
  - MALAISE [None]
  - NECK PAIN [None]
  - POST PROCEDURAL INFECTION [None]
  - PYREXIA [None]
